FAERS Safety Report 7186213-7 (Version None)
Quarter: 2010Q4

REPORT INFORMATION
  Report Type: 
  Country: None (occurrence: None)
  Receive Date: 20101222
  Receipt Date: 20100616
  Transmission Date: 20110411
  Serious: No
  Sender: FDA-Public Use
  Company Number: US-AMGEN-TCS414731

PATIENT

DRUGS (5)
  1. ENBREL [Suspect]
     Indication: PSORIASIS
     Dosage: 50 MG, QWK
     Route: 058
     Dates: start: 20100428
  2. LEVOTHYROXINE SODIUM [Concomitant]
     Dosage: UNK UNK, UNK
     Dates: start: 20090101
  3. ANASTROZOLE [Concomitant]
     Dosage: UNK UNK, UNK
     Dates: start: 20090101
  4. DULOXETIME HYDROCHLORIDE [Concomitant]
     Dosage: UNK UNK, UNK
     Dates: start: 20090301
  5. ARIPIPRAZOLE [Concomitant]
     Dosage: UNK UNK, UNK
     Dates: start: 20091201

REACTIONS (2)
  - INJECTION SITE PAIN [None]
  - THERAPEUTIC RESPONSE DECREASED [None]
